FAERS Safety Report 24850032 (Version 1)
Quarter: 2025Q1

REPORT INFORMATION
  Report Type: Spontaneous
  Country: FR (occurrence: FR)
  Receive Date: 20250116
  Receipt Date: 20250116
  Transmission Date: 20250409
  Serious: Yes (Other)
  Sender: TEVA
  Company Number: None

PATIENT
  Age: 71 Year
  Sex: Male

DRUGS (3)
  1. RAMIPRIL [Suspect]
     Active Substance: RAMIPRIL
     Indication: Wrong drug
     Route: 048
     Dates: start: 20240201, end: 20240401
  2. CEFIXIME [Suspect]
     Active Substance: CEFIXIME
     Indication: Rhinitis
     Route: 048
     Dates: start: 20240321, end: 20240331
  3. GILTERITINIB [Concomitant]
     Active Substance: GILTERITINIB
     Indication: Product used for unknown indication
     Route: 065

REACTIONS (2)
  - Hepatic cytolysis [Recovered/Resolved]
  - Product dispensing error [Recovered/Resolved]

NARRATIVE: CASE EVENT DATE: 20240201
